FAERS Safety Report 4964885-2 (Version None)
Quarter: 2006Q2

REPORT INFORMATION
  Report Type: 
  Country: None (occurrence: None)
  Receive Date: 20060403
  Receipt Date: 20060316
  Transmission Date: 20061013
  Serious: Yes (Hospitalization)
  Sender: FDA-Public Use
  Company Number: DSA_27928_2006

PATIENT
  Age: 37 Year
  Sex: Female

DRUGS (6)
  1. TAVOR [Suspect]
     Dosage: DF ONCE, PO
     Route: 048
     Dates: start: 20060316, end: 20060316
  2. IBUPROFEN [Suspect]
     Dosage: DF ONCE, PO
     Route: 048
     Dates: start: 20060316, end: 20060316
  3. LASIX [Suspect]
     Dosage: DF ONCE, PO
     Route: 048
     Dates: start: 20060316, end: 20060316
  4. TALVOSILEN [Suspect]
     Dosage: DF ONCE, PO
     Route: 048
     Dates: start: 20060316, end: 20060316
  5. ALCOHOL [Suspect]
     Dosage: DF ONCE, PO
     Route: 048
     Dates: start: 20060316, end: 20060316
  6. RAT POISON [Suspect]
     Dosage: DR ONCE
     Dates: start: 20060316, end: 20060316

REACTIONS (4)
  - MULTIPLE DRUG OVERDOSE INTENTIONAL [None]
  - SOPOR [None]
  - SUICIDE ATTEMPT [None]
  - TACHYCARDIA [None]
